FAERS Safety Report 15867229 (Version 1)
Quarter: 2019Q1

REPORT INFORMATION
  Report Type: Report from Study
  Country: RU (occurrence: RU)
  Receive Date: 20190125
  Receipt Date: 20190125
  Transmission Date: 20190417
  Serious: Yes (Death)
  Sender: FDA-Public Use
  Company Number: RU-ROCHE-2248939

PATIENT
  Age: 76 Year
  Sex: Male

DRUGS (1)
  1. ESBRIET [Suspect]
     Active Substance: PIRFENIDONE
     Indication: IDIOPATHIC PULMONARY FIBROSIS
     Route: 065
     Dates: start: 201812, end: 20181221

REACTIONS (3)
  - Dyspnoea [Fatal]
  - Death [Fatal]
  - Haemoptysis [Fatal]

NARRATIVE: CASE EVENT DATE: 20181219
